FAERS Safety Report 7153241-7 (Version None)
Quarter: 2010Q4

REPORT INFORMATION
  Report Type: 
  Country: None (occurrence: None)
  Receive Date: 20101209
  Receipt Date: 20101209
  Transmission Date: 20110411
  Serious: Yes (Other)
  Sender: FDA-Public Use
  Company Number: None

PATIENT
  Age: 67 Year
  Sex: Female
  Weight: 55.3388 kg

DRUGS (5)
  1. RITUXAN [Suspect]
     Indication: NON-HODGKIN'S LYMPHOMA
     Dosage: WEEKLY IV X  325MG/ML  6 TREATMENTS
     Route: 042
     Dates: start: 20100819, end: 20100923
  2. RITUXAN [Suspect]
  3. RITUXAN [Suspect]
  4. RITUXAN [Suspect]
  5. RITUXAN [Suspect]

REACTIONS (2)
  - GINGIVAL EROSION [None]
  - GINGIVITIS [None]
